FAERS Safety Report 14302573 (Version 1)
Quarter: 2017Q4

REPORT INFORMATION
  Report Type: Spontaneous
  Country: US (occurrence: US)
  Receive Date: 20171219
  Receipt Date: 20171219
  Transmission Date: 20180321
  Serious: Yes (Hospitalization, Disabling)
  Sender: FDA-Public Use
  Company Number: None

PATIENT
  Sex: Male
  Weight: 33.3 kg

DRUGS (1)
  1. MONTELUKAST [Suspect]
     Active Substance: MONTELUKAST SODIUM
     Indication: ASTHMA
     Dosage: ?          QUANTITY:1 TABLET(S);?
     Route: 048

REACTIONS (7)
  - Anxiety [None]
  - Granular cell tumour [None]
  - Fear [None]
  - Obsessive-compulsive disorder [None]
  - Urticaria [None]
  - Impaired work ability [None]
  - Inflammation [None]

NARRATIVE: CASE EVENT DATE: 20160401
